FAERS Safety Report 5143802-9 (Version None)
Quarter: 2006Q4

REPORT INFORMATION
  Report Type: 
  Country: None (occurrence: None)
  Receive Date: 20061106
  Receipt Date: 20060511
  Transmission Date: 20070319
  Serious: Yes (Other)
  Sender: FDA-Public Use
  Company Number: US-NOVOPROD-253168

PATIENT
  Age: 56 Year
  Sex: Male
  Weight: 77 kg

DRUGS (5)
  1. INSULIN DETEMIR FLEXPEN [Suspect]
     Indication: INSULIN-REQUIRING TYPE II DIABETES MELLITUS
     Dosage: 30 U, QD
     Route: 058
     Dates: start: 20060420, end: 20060509
  2. GLUCOPHAGE                         /00082701/ [Concomitant]
     Dosage: 500 MG, BID
     Route: 048
     Dates: start: 20011119
  3. ACTOS [Concomitant]
     Dosage: 45 MG, QD
     Route: 048
     Dates: start: 20000822
  4. MEVACOR [Concomitant]
     Dosage: 40 MG, QD
     Route: 048
     Dates: start: 20040812
  5. LEVITRA [Concomitant]
     Dosage: UNK, PRN
     Route: 048
     Dates: start: 20041101

REACTIONS (2)
  - MUSCLE SPASMS [None]
  - WEIGHT DECREASED [None]
